FAERS Safety Report 23279132 (Version 2)
Quarter: 2023Q4

REPORT INFORMATION
  Report Type: Spontaneous
  Country: US (occurrence: US)
  Receive Date: 20231209
  Receipt Date: 20231209
  Transmission Date: 20240109
  Serious: No
  Sender: FDA-Public Use
  Company Number: US-OPELLA-2023OHG014798

PATIENT

DRUGS (1)
  1. CORTIZONE 10 COOLING RELIEF [Suspect]
     Active Substance: HYDROCORTISONE
     Indication: Pruritus

REACTIONS (1)
  - Application site pain [Unknown]
